FAERS Safety Report 5534662-2 (Version None)
Quarter: 2007Q4

REPORT INFORMATION
  Report Type: 
  Country: None (occurrence: None)
  Receive Date: 20071205
  Receipt Date: 20071130
  Transmission Date: 20080405
  Serious: Yes (Hospitalization)
  Sender: FDA-Public Use
  Company Number: GB-SANOFI-SYNTHELABO-A01200709395

PATIENT
  Age: 69 Year
  Sex: Male

DRUGS (4)
  1. ELOXATIN [Suspect]
     Indication: RECTAL CANCER
     Route: 042
  2. ELOXATIN [Suspect]
     Indication: METASTASES TO LIVER
     Route: 042
  3. XELODA [Suspect]
     Indication: RECTAL CANCER
     Route: 048
  4. XELODA [Suspect]
     Indication: METASTASES TO LIVER
     Route: 048

REACTIONS (3)
  - ABDOMINAL PAIN [None]
  - PERIPHERAL ISCHAEMIA [None]
  - VOMITING [None]
